FAERS Safety Report 5160137-9 (Version None)
Quarter: 2006Q4

REPORT INFORMATION
  Report Type: 
  Country: None (occurrence: None)
  Receive Date: 20061129
  Receipt Date: 20061127
  Transmission Date: 20070319
  Serious: Yes (Other)
  Sender: FDA-Public Use
  Company Number: US-BRISTOL-MYERS SQUIBB COMPANY-13589817

PATIENT
  Sex: Female

DRUGS (8)
  1. CARBOPLATIN [Suspect]
     Indication: OVARIAN EPITHELIAL CANCER
  2. CISPLATIN [Suspect]
     Indication: OVARIAN EPITHELIAL CANCER
  3. METOCLOPRAMIDE [Concomitant]
     Indication: PROPHYLAXIS OF NAUSEA AND VOMITING
  4. DIPHENHYDRAMINE HCL [Concomitant]
     Indication: PROPHYLAXIS OF NAUSEA AND VOMITING
  5. LORAZEPAM [Concomitant]
     Indication: PROPHYLAXIS OF NAUSEA AND VOMITING
  6. PROCHLORPERAZINE [Concomitant]
     Indication: PROPHYLAXIS OF NAUSEA AND VOMITING
  7. ONDANSETRON [Concomitant]
     Indication: PROPHYLAXIS OF NAUSEA AND VOMITING
  8. DEXAMETHASONE TAB [Concomitant]
     Indication: PROPHYLAXIS OF NAUSEA AND VOMITING

REACTIONS (7)
  - AMNESIA [None]
  - BLINDNESS [None]
  - NEUROPATHY PERIPHERAL [None]
  - NEUTROPENIA [None]
  - OPTIC NEURITIS [None]
  - OTOTOXICITY [None]
  - THROMBOCYTOPENIA [None]
